FAERS Safety Report 10345888 (Version 2)
Quarter: 2014Q3

REPORT INFORMATION
  Report Type: Report from Study
  Country: MX (occurrence: MX)
  Receive Date: 20140728
  Receipt Date: 20140812
  Transmission Date: 20150326
  Serious: No
  Sender: FDA-Public Use
  Company Number: PHHY2014MX092380

PATIENT
  Age: 7 Year
  Sex: Male

DRUGS (4)
  1. RITALIN [Suspect]
     Active Substance: METHYLPHENIDATE HYDROCHLORIDE
     Dosage: 1.5 DF, QD
     Route: 048
     Dates: start: 20140720
  2. RITALIN [Suspect]
     Active Substance: METHYLPHENIDATE HYDROCHLORIDE
     Dosage: 0.5 DF, BID
     Route: 048
     Dates: start: 201404
  3. TOPIRAMATE. [Concomitant]
     Active Substance: TOPIRAMATE
     Indication: NERVOUS SYSTEM DISORDER
     Dosage: 1 DF, BID
     Dates: start: 201407
  4. RITALIN [Suspect]
     Active Substance: METHYLPHENIDATE HYDROCHLORIDE
     Indication: ATTENTION DEFICIT/HYPERACTIVITY DISORDER
     Dosage: 0.5 DF, BID
     Route: 048
     Dates: start: 201404

REACTIONS (4)
  - Headache [Recovered/Resolved]
  - Nausea [Recovered/Resolved]
  - Drug intolerance [Recovered/Resolved]
  - Abdominal pain upper [Recovered/Resolved]
